FAERS Safety Report 13460924 (Version 1)
Quarter: 2017Q2

REPORT INFORMATION
  Report Type: Spontaneous
  Country: US (occurrence: US)
  Receive Date: 20170419
  Receipt Date: 20170419
  Transmission Date: 20170830
  Serious: Yes (Disabling)
  Sender: FDA-Public Use
  Company Number: None

PATIENT
  Age: 19 Year
  Sex: Female
  Weight: 58.06 kg

DRUGS (3)
  1. GOODSENSE ANIMAL SHAPES [Concomitant]
  2. EQUATE JUNIOR STRENGTH IBUPROFEN [Concomitant]
  3. NEXPLANON [Suspect]
     Active Substance: ETONOGESTREL
     Dates: start: 20161011

REACTIONS (1)
  - Oligomenorrhoea [None]

NARRATIVE: CASE EVENT DATE: 20170419
